FAERS Safety Report 5615407-4 (Version None)
Quarter: 2008Q1

REPORT INFORMATION
  Report Type: 
  Country: None (occurrence: None)
  Receive Date: 20080131
  Receipt Date: 20080122
  Transmission Date: 20080703
  Serious: Yes (Hospitalization)
  Sender: FDA-Public Use
  Company Number: 2008-00245

PATIENT
  Age: 61 Year
  Sex: Female
  Weight: 96.6 kg

DRUGS (1)
  1. VELCADE [Suspect]
     Indication: MULTIPLE MYELOMA

REACTIONS (5)
  - EAR PAIN [None]
  - HAEMATOTOXICITY [None]
  - PANCYTOPENIA [None]
  - PYREXIA [None]
  - RESPIRATORY DISORDER [None]
